FAERS Safety Report 9715436 (Version 1)
Quarter: 2013Q4

REPORT INFORMATION
  Report Type: Spontaneous
  Country: IN (occurrence: IN)
  Receive Date: 20131127
  Receipt Date: 20131127
  Transmission Date: 20140711
  Serious: Yes (Other)
  Sender: FDA-Public Use
  Company Number: IN-009507513-1311IND010126

PATIENT
  Age: 68 Year
  Sex: 0

DRUGS (1)
  1. JANUMET [Suspect]
     Dosage: 50/500 MG, 2/DAY

REACTIONS (2)
  - Renal disorder [Unknown]
  - Back pain [Unknown]
